FAERS Safety Report 11410914 (Version 1)
Quarter: 2015Q3

REPORT INFORMATION
  Report Type: Other
  Country: FR (occurrence: FR)
  Receive Date: 20150824
  Receipt Date: 20150824
  Transmission Date: 20151125
  Serious: Yes (Hospitalization)
  Sender: FDA-Public Use
  Company Number: FR-MYLANLABS-2015M1027222

PATIENT

DRUGS (2)
  1. METHOTREXATE (METHOTREXATE SODIUM) [Suspect]
     Active Substance: METHOTREXATE SODIUM
     Indication: NON-HODGKIN^S LYMPHOMA STAGE IV
     Dosage: 5600 MG, CYCLE
     Route: 042
     Dates: start: 20150601, end: 20150601
  2. CALCIUM FOLINATE [Concomitant]
     Active Substance: LEUCOVORIN CALCIUM

REACTIONS (3)
  - Chemotherapeutic drug level above therapeutic [Recovered/Resolved]
  - Acute kidney injury [Recovered/Resolved]
  - Diabetes insipidus [Unknown]

NARRATIVE: CASE EVENT DATE: 20150604
